FAERS Safety Report 6880570-4 (Version None)
Quarter: 2010Q3

REPORT INFORMATION
  Report Type: 
  Country: None (occurrence: None)
  Receive Date: 20100728
  Receipt Date: 20100720
  Transmission Date: 20110219
  Serious: Yes (Hospitalization)
  Sender: FDA-Public Use
  Company Number: GB-MILLENNIUM PHARMACEUTICALS, INC.-2010-03924

PATIENT

DRUGS (9)
  1. VELCADE [Suspect]
     Indication: MULTIPLE MYELOMA
     Dosage: UNK
     Route: 042
     Dates: start: 20100707, end: 20100707
  2. ACYCLOVIR [Concomitant]
  3. COTRIM [Concomitant]
  4. CYCLOPHOSPHAMIDE [Concomitant]
  5. DALTEPARIN SODIUM [Concomitant]
  6. DEXAMETHASONE [Concomitant]
  7. FLUCLOXACILLIN [Concomitant]
  8. SIMVASTATIN [Concomitant]
  9. WARFARIN SODIUM [Concomitant]
     Dosage: UNK

REACTIONS (1)
  - URINE OUTPUT DECREASED [None]
